FAERS Safety Report 14382106 (Version 1)
Quarter: 2018Q1

REPORT INFORMATION
  Report Type: Report from Study
  Country: GB (occurrence: GB)
  Receive Date: 20180112
  Receipt Date: 20180112
  Transmission Date: 20180509
  Serious: Yes (Other)
  Sender: FDA-Public Use
  Company Number: PHHY2018GB002009

PATIENT
  Sex: Male

DRUGS (1)
  1. COSENTYX [Suspect]
     Active Substance: SECUKINUMAB
     Indication: PSORIASIS
     Dosage: 300 MG, QMO
     Route: 058
     Dates: start: 20170810

REACTIONS (5)
  - Nasopharyngitis [Unknown]
  - Decreased immune responsiveness [Unknown]
  - Influenza [Unknown]
  - Dyspnoea [Unknown]
  - Lower respiratory tract infection [Unknown]
